FAERS Safety Report 8830217 (Version 3)
Quarter: 2013Q2

REPORT INFORMATION
  Report Type: Report from Study
  Country: BG (occurrence: BG)
  Receive Date: 20121008
  Receipt Date: 20130530
  Transmission Date: 20140414
  Serious: Yes (Hospitalization)
  Sender: FDA-Public Use
  Company Number: BG-ASTRAZENECA-2012SE76011

PATIENT
  Age: 21192 Day
  Sex: Male

DRUGS (14)
  1. AZD6140 [Suspect]
     Indication: CORONARY ARTERY DISEASE
     Route: 048
     Dates: start: 20110912, end: 20110918
  2. AZD6140 [Suspect]
     Indication: CORONARY ARTERY DISEASE
     Route: 048
     Dates: start: 20111019, end: 20120129
  3. AZD6140 [Suspect]
     Indication: CORONARY ARTERY DISEASE
     Route: 048
     Dates: start: 20120201, end: 20120922
  4. PLACEBO [Suspect]
     Indication: CORONARY ARTERY DISEASE
     Route: 048
     Dates: start: 20120201, end: 20120922
  5. PLACEBO [Suspect]
     Indication: ACUTE CORONARY SYNDROME
     Route: 048
     Dates: start: 20120201, end: 20120922
  6. ASPIRIN [Suspect]
     Route: 048
     Dates: end: 20120923
  7. TWYNSTA [Concomitant]
     Indication: HYPERTENSION
     Route: 048
     Dates: start: 20120528
  8. ATORVASTATIN [Concomitant]
     Indication: DYSLIPIDAEMIA
     Route: 048
     Dates: start: 20120525, end: 20120923
  9. ISOKET [Concomitant]
     Indication: CORONARY ARTERY DISEASE
     Route: 048
     Dates: start: 20110907, end: 20120923
  10. PREDUCTAL MR [Concomitant]
     Indication: CORONARY ARTERY DISEASE
     Route: 048
     Dates: start: 20110907
  11. CALCIUM GLUCONICI [Concomitant]
     Indication: GASTRITIS HAEMORRHAGIC
     Route: 042
     Dates: start: 20120923, end: 20120926
  12. AXID [Concomitant]
     Indication: GASTRITIS HAEMORRHAGIC
     Route: 042
     Dates: start: 20120923, end: 20120926
  13. VIT C [Concomitant]
     Indication: GASTRITIS HAEMORRHAGIC
     Route: 042
     Dates: start: 20120923, end: 20120926
  14. DICYNONE [Concomitant]
     Indication: GASTRITIS HAEMORRHAGIC
     Route: 042
     Dates: start: 20120923, end: 20120926

REACTIONS (2)
  - Gastroduodenitis haemorrhagic [Recovered/Resolved]
  - Syncope [Recovered/Resolved]
